FAERS Safety Report 19840250 (Version 1)
Quarter: 2021Q3

REPORT INFORMATION
  Report Type: Spontaneous
  Country: US (occurrence: US)
  Receive Date: 20210916
  Receipt Date: 20210916
  Transmission Date: 20211014
  Serious: Yes (Death)
  Sender: FDA-Public Use
  Company Number: None

PATIENT
  Age: 97 Year
  Sex: Male

DRUGS (2)
  1. CLOPIDOGREL [Suspect]
     Active Substance: CLOPIDOGREL BISULFATE
  2. WARFARIN [Suspect]
     Active Substance: WARFARIN

REACTIONS (4)
  - Subdural haematoma [None]
  - Subarachnoid haemorrhage [None]
  - Fall [None]
  - Head injury [None]

NARRATIVE: CASE EVENT DATE: 20210726
